FAERS Safety Report 7446104-0 (Version None)
Quarter: 2011Q2

REPORT INFORMATION
  Report Type: 
  Country: None (occurrence: None)
  Receive Date: 20110429
  Receipt Date: 20110422
  Transmission Date: 20111010
  Serious: Yes (Other)
  Sender: FDA-Public Use
  Company Number: A0884419A

PATIENT
  Age: 60 Year
  Sex: Male

DRUGS (2)
  1. FLOMAX [Suspect]
     Route: 065
  2. AVODART [Suspect]
     Route: 065

REACTIONS (5)
  - DRUG INEFFECTIVE [None]
  - CALCULUS URINARY [None]
  - BLOOD URINE PRESENT [None]
  - HAEMORRHAGE [None]
  - ILL-DEFINED DISORDER [None]
